FAERS Safety Report 7210247-7 (Version None)
Quarter: 2011Q1

REPORT INFORMATION
  Report Type: 
  Country: None (occurrence: None)
  Receive Date: 20110105
  Receipt Date: 20101228
  Transmission Date: 20110831
  Serious: Yes (Hospitalization)
  Sender: FDA-Public Use
  Company Number: JP-JNJFOC-20101204323

PATIENT
  Sex: Female
  Weight: 47 kg

DRUGS (8)
  1. REMICADE [Suspect]
     Route: 042
  2. ASPARA-CA [Concomitant]
     Route: 048
  3. EVISTA [Concomitant]
     Route: 048
  4. REMICADE [Suspect]
     Dosage: 26 INFUSIONS; DATES UNSPECIFIED
     Route: 042
  5. REMICADE [Suspect]
     Dosage: 28TH INFUSION
     Route: 042
  6. REMICADE [Suspect]
     Indication: RHEUMATOID ARTHRITIS
     Route: 042
  7. PARIET [Concomitant]
     Route: 048
  8. METHOTREXATE [Concomitant]
     Indication: RHEUMATOID ARTHRITIS
     Route: 048

REACTIONS (1)
  - CERVICAL DYSPLASIA [None]
